FAERS Safety Report 11062746 (Version 1)
Quarter: 2015Q2

REPORT INFORMATION
  Report Type: Spontaneous
  Country: FR (occurrence: FR)
  Receive Date: 20150424
  Receipt Date: 20150424
  Transmission Date: 20150821
  Serious: Yes (Other)
  Sender: FDA-Public Use
  Company Number: PHHY2015FR046717

PATIENT
  Age: 67 Year
  Sex: Female

DRUGS (2)
  1. SOTALOL. [Suspect]
     Active Substance: SOTALOL
     Dosage: 80 MG, QD
     Route: 065
  2. SOTALOL. [Suspect]
     Active Substance: SOTALOL
     Indication: PRODUCT USED FOR UNKNOWN INDICATION
     Dosage: 20 MG, QD
     Route: 065

REACTIONS (9)
  - Pyrexia [Unknown]
  - Organising pneumonia [Recovering/Resolving]
  - Dyspnoea [Unknown]
  - Pulmonary fibrosis [Unknown]
  - Asthenia [Unknown]
  - Inflammation [Unknown]
  - Chest discomfort [Unknown]
  - Thrombosis [Unknown]
  - Lung consolidation [Unknown]
